FAERS Safety Report 22295383 (Version 1)
Quarter: 2023Q2

REPORT INFORMATION
  Report Type: Spontaneous
  Country: US (occurrence: None)
  Receive Date: 20230505
  Receipt Date: 20230505
  Transmission Date: 20230721
  Serious: Yes (Other)
  Sender: FDA-Public Use
  Company Number: None

PATIENT
  Age: 68 Year
  Sex: Female

DRUGS (13)
  1. OPSUMIT [Suspect]
     Active Substance: MACITENTAN
     Indication: Pulmonary arterial hypertension
     Dosage: FREQUENCY : DAILY;?
     Route: 048
     Dates: start: 20180730
  2. SILDENAFIL [Concomitant]
     Active Substance: SILDENAFIL
  3. SIMVASTATIN [Concomitant]
  4. alvesco HFA [Concomitant]
  5. AZATHIOPRINE [Concomitant]
     Active Substance: AZATHIOPRINE
  6. ALBUTEROL SULFATE [Concomitant]
     Active Substance: ALBUTEROL SULFATE
  7. OMEPRAZOLE [Concomitant]
     Active Substance: OMEPRAZOLE
  8. PREDNISONE [Concomitant]
  9. FOLIC ACID [Concomitant]
     Active Substance: FOLIC ACID
  10. METFORMIN [Concomitant]
  11. GLIPIZIDE [Concomitant]
     Active Substance: GLIPIZIDE
  12. calcium carbonate-vit D3 [Concomitant]
  13. aspirin [Concomitant]

REACTIONS (2)
  - Bronchitis [None]
  - Oropharyngeal pain [None]

NARRATIVE: CASE EVENT DATE: 20230426
